FAERS Safety Report 17105482 (Version 2)
Quarter: 2019Q4

REPORT INFORMATION
  Report Type: Spontaneous
  Country: DE (occurrence: DE)
  Receive Date: 20191203
  Receipt Date: 20191217
  Transmission Date: 20200122
  Serious: Yes (Death, Hospitalization, Other)
  Sender: FDA-Public Use
  Company Number: DE-PFIZER INC-2019517128

PATIENT
  Sex: Male
  Weight: 65 kg

DRUGS (12)
  1. METAMIZOLE [Suspect]
     Active Substance: METAMIZOLE
     Indication: ACCIDENT
     Dosage: UNK, (4X40 DROPS)
     Route: 048
     Dates: start: 20190831, end: 20190906
  2. METHOTREXATE SODIUM. [Suspect]
     Active Substance: METHOTREXATE SODIUM
     Dosage: UNK, DAILY
  3. METAMIZOLE [Suspect]
     Active Substance: METAMIZOLE
     Indication: PAIN
     Dosage: UNK
     Dates: start: 2019
  4. PREDNISOLONE. [Concomitant]
     Active Substance: PREDNISOLONE
     Dosage: UNK, 1X/DAY (1-0-0))
  5. METEX [METHOTREXATE SODIUM] [Suspect]
     Active Substance: METHOTREXATE SODIUM
     Dosage: 15 MG, WEEKLY
     Route: 048
     Dates: start: 200908, end: 20190831
  6. FURADANTINE [Suspect]
     Active Substance: NITROFURANTOIN
     Indication: URINARY TRACT INFECTION
     Dosage: UNK
  7. LANTAREL [Suspect]
     Active Substance: METHOTREXATE SODIUM
     Indication: RHEUMATOID ARTHRITIS
     Dosage: 10 MG, WEEKLY
     Route: 048
     Dates: start: 2007, end: 20190831
  8. METHOTREXATE SODIUM. [Suspect]
     Active Substance: METHOTREXATE SODIUM
     Dosage: UNK
     Dates: start: 2009
  9. METEX [METHOTREXATE SODIUM] [Suspect]
     Active Substance: METHOTREXATE SODIUM
     Indication: RHEUMATOID ARTHRITIS
     Dosage: UNK, 1X/DAY
  10. VITAMIN D NOS [Concomitant]
     Active Substance: VITAMIN D NOS
     Dosage: UNK
  11. FOLIC ACID. [Concomitant]
     Active Substance: FOLIC ACID
     Dosage: UNK, WEEKLY (24H AFTER)
     Route: 048
  12. LANTAREL [Suspect]
     Active Substance: METHOTREXATE SODIUM
     Dosage: 1 DF, 1X/DAY
     Route: 048
     Dates: start: 20190831, end: 20190906

REACTIONS (37)
  - Product prescribing error [Fatal]
  - Dysphagia [Fatal]
  - Pneumonia aspiration [Fatal]
  - Thrombocytopenia [Fatal]
  - Urosepsis [Fatal]
  - Agranulocytosis [Fatal]
  - Urinary tract disorder [Unknown]
  - Death [Fatal]
  - Cholecystitis [Unknown]
  - Diarrhoea [Unknown]
  - Femur fracture [Fatal]
  - Polyuria [Fatal]
  - Wound infection [Fatal]
  - Leukopenia [Unknown]
  - Hepatic cyst [Unknown]
  - Bladder obstruction [Unknown]
  - Tachycardia [Unknown]
  - Respiratory rate increased [Unknown]
  - Bladder disorder [Unknown]
  - Mucosal inflammation [Unknown]
  - Road traffic accident [Fatal]
  - Melaena [Fatal]
  - Hypochromic anaemia [Unknown]
  - Hypotension [Unknown]
  - Dysarthria [Fatal]
  - Ulcerative gastritis [Fatal]
  - Cholelithiasis [Unknown]
  - Pleural effusion [Unknown]
  - Infarction [Fatal]
  - Upper gastrointestinal haemorrhage [Fatal]
  - Pancytopenia [Fatal]
  - Febrile neutropenia [Fatal]
  - Renal cyst [Unknown]
  - Urinary tract infection [Unknown]
  - Arteriosclerosis [Unknown]
  - Increased bronchial secretion [Unknown]
  - C-reactive protein increased [Unknown]

NARRATIVE: CASE EVENT DATE: 2019
